FAERS Safety Report 6250412-9 (Version None)
Quarter: 2009Q2

REPORT INFORMATION
  Report Type: 
  Country: None (occurrence: None)
  Receive Date: 20090630
  Receipt Date: 20090624
  Transmission Date: 20091009
  Serious: Yes (Disabling)
  Sender: FDA-Public Use
  Company Number: FR-BRISTOL-MYERS SQUIBB COMPANY-14680789

PATIENT
  Age: 61 Year
  Sex: Female

DRUGS (15)
  1. TAXOL [Suspect]
     Indication: BREAST CANCER METASTATIC
     Dosage: STARTED=27AUG08;CHEMO INCLUDED 80MG/M2 EVERY WEEK,THEN 4CYC AT 90MG/M2EVERY WEEK WITH AVASTIN-D1,15
     Dates: start: 20080827, end: 20090205
  2. AVASTIN [Suspect]
     Indication: BREAST CANCER METASTATIC
     Dosage: INITIATED ON 21-AUG-2008; 1 DF= 25 MG/ML; CHEMOTHERAPY ON DAY 1 AND DAY 15
     Dates: start: 20080821, end: 20090205
  3. AROMASIN [Suspect]
     Dates: start: 20090201, end: 20090320
  4. SKENAN [Concomitant]
     Dosage: INCREASED TO 80 MG IN MORNING AND EVENING
  5. ACTISKENAN [Concomitant]
     Dosage: DOSE INCREASED TO 20 MG AT EACH INTAKE
  6. CLONAZEPAM [Concomitant]
     Dosage: DOSE DECREASED
     Dates: start: 20090219
  7. FORLAX [Concomitant]
     Dosage: MACROGOL 4000
  8. LANTUS [Concomitant]
     Dosage: IN EVENING
  9. GLUCOPHAGE [Concomitant]
  10. NOVONORM [Concomitant]
  11. ELISOR [Concomitant]
  12. TRIATEC [Concomitant]
  13. KREDEX [Concomitant]
  14. LASIX [Concomitant]
  15. HEMIGOXINE NATIVELLE [Concomitant]

REACTIONS (8)
  - AXONAL NEUROPATHY [None]
  - BONE PAIN [None]
  - DEMYELINATION [None]
  - INSOMNIA [None]
  - MYALGIA [None]
  - MYOPATHY [None]
  - NEUROPATHY PERIPHERAL [None]
  - OSTEOARTHRITIS [None]
